FAERS Safety Report 19151395 (Version 1)
Quarter: 2021Q2

REPORT INFORMATION
  Report Type: Spontaneous
  Country: US (occurrence: US)
  Receive Date: 20210419
  Receipt Date: 20210419
  Transmission Date: 20210717
  Serious: No
  Sender: FDA-Public Use
  Company Number: US-GLAXOSMITHKLINE-US2021085452

PATIENT
  Sex: Male

DRUGS (1)
  1. ADVAIR DISKUS [Suspect]
     Active Substance: FLUTICASONE PROPIONATE\SALMETEROL XINAFOATE
     Indication: ASTHMA
     Dosage: 1 PUFF(S), BID, 250/50
     Route: 055
     Dates: start: 202101, end: 202102

REACTIONS (6)
  - Dysphonia [Not Recovered/Not Resolved]
  - Fungal infection [Not Recovered/Not Resolved]
  - Illness [Not Recovered/Not Resolved]
  - Product administration interrupted [Unknown]
  - Vocal cord disorder [Not Recovered/Not Resolved]
  - Candida infection [Not Recovered/Not Resolved]
